FAERS Safety Report 8525304-2 (Version None)
Quarter: 2012Q3

REPORT INFORMATION
  Report Type: 
  Country: None (occurrence: None)
  Receive Date: 20120720
  Receipt Date: 20120718
  Transmission Date: 20120928
  Serious: Yes (Death, Hospitalization, Other)
  Sender: FDA-Public Use
  Company Number: PHHY2012CH061606

PATIENT
  Age: 57 Year
  Sex: Female

DRUGS (14)
  1. CYMBALTA [Concomitant]
     Dosage: 60 MG, QD
     Route: 048
     Dates: end: 20120131
  2. NAVOBAN [Concomitant]
     Dosage: 5 MG, UNK
     Route: 042
     Dates: start: 20120117, end: 20120117
  3. NEORAL [Suspect]
     Dosage: 100 MG, DAILY
     Route: 048
     Dates: start: 20100805, end: 20120120
  4. CELLCEPT [Concomitant]
     Dosage: 2000 MG, QD
     Route: 048
     Dates: end: 20120122
  5. BUDENOFALK [Concomitant]
     Dosage: 9 MG, QD
     Route: 048
     Dates: end: 20120122
  6. CARVEDILOL [Concomitant]
     Dosage: 50 MG, QD
     Route: 048
     Dates: end: 20120122
  7. LEVOTHYROXINE SODIUM [Concomitant]
     Dosage: 0.125 MG, QD
     Route: 048
     Dates: start: 20120117
  8. VALTREX [Concomitant]
     Dosage: 1000 MG, QD
     Route: 048
     Dates: end: 20120221
  9. LORAPEMID [Concomitant]
     Dosage: 4 MG, QD
     Route: 048
     Dates: end: 20120119
  10. PASPERTIN [Concomitant]
     Dosage: 10 MG, UNK
     Route: 042
     Dates: start: 20120117, end: 20120117
  11. NEXIUM [Concomitant]
     Dosage: 80 MG, QD
     Route: 048
     Dates: end: 20120118
  12. LORAZEPAM [Concomitant]
     Dosage: 1 MG, UNK
     Route: 048
     Dates: start: 20120117, end: 20120120
  13. PREDNISONE TAB [Concomitant]
     Dosage: 5 MG, QD
     Route: 048
     Dates: start: 20120103, end: 20120118
  14. FRAGMIN [Concomitant]
     Dosage: 5000 IU, UNK
     Route: 058
     Dates: start: 20120116, end: 20120118

REACTIONS (10)
  - DISTURBANCE IN ATTENTION [None]
  - SEDATION [None]
  - DEHYDRATION [None]
  - RENAL FAILURE ACUTE [None]
  - DIARRHOEA [None]
  - THROMBOTIC MICROANGIOPATHY [None]
  - GRAFT VERSUS HOST DISEASE IN INTESTINE [None]
  - IMMUNOSUPPRESSANT DRUG LEVEL INCREASED [None]
  - ENCEPHALOPATHY [None]
  - METABOLIC ACIDOSIS [None]
